FAERS Safety Report 20974857 (Version 1)
Quarter: 2022Q2

REPORT INFORMATION
  Report Type: Spontaneous
  Country: US (occurrence: US)
  Receive Date: 20220617
  Receipt Date: 20220617
  Transmission Date: 20220721
  Serious: No
  Sender: FDA-Public Use
  Company Number: US-APOTEX-2022AP007787

PATIENT
  Age: 7 Year
  Sex: Female

DRUGS (1)
  1. ATOMOXETINE [Suspect]
     Active Substance: ATOMOXETINE
     Indication: Attention deficit hyperactivity disorder
     Dosage: UNK
     Route: 065

REACTIONS (3)
  - Pancreatic enzymes increased [Unknown]
  - Abdominal pain upper [Unknown]
  - Hepatic enzyme increased [Unknown]
